FAERS Safety Report 21144937 (Version 2)
Quarter: 2022Q4

REPORT INFORMATION
  Report Type: Report from Study
  Country: US (occurrence: US)
  Receive Date: 20220728
  Receipt Date: 20221017
  Transmission Date: 20230112
  Serious: Yes (Other)
  Sender: FDA-Public Use
  Company Number: US-ABBVIE-22K-163-4396756-00

PATIENT
  Sex: Female
  Weight: 84.821 kg

DRUGS (3)
  1. SKYRIZI [Suspect]
     Active Substance: RISANKIZUMAB-RZAA
     Indication: Psoriasis
     Dosage: WEEK 0?END DATE- 2022?STRENGTH- 150 MG
     Route: 058
     Dates: start: 20220414
  2. SKYRIZI [Suspect]
     Active Substance: RISANKIZUMAB-RZAA
     Dosage: WEEK 4?END DATE- 2022?STRENGTH- 150 MG
     Route: 058
     Dates: start: 20220512
  3. SKYRIZI [Suspect]
     Active Substance: RISANKIZUMAB-RZAA
     Dosage: STRENGTH- 150 MG
     Route: 058
     Dates: start: 20220512

REACTIONS (8)
  - Trigger finger [Recovering/Resolving]
  - Pruritus [Unknown]
  - Fall [Unknown]
  - Pain [Unknown]
  - Arthralgia [Recovering/Resolving]
  - Erythema [Recovered/Resolved]
  - Erythema [Unknown]
  - Loss of personal independence in daily activities [Unknown]

NARRATIVE: CASE EVENT DATE: 20220101
